FAERS Safety Report 5672141-2 (Version None)
Quarter: 2008Q1

REPORT INFORMATION
  Report Type: 
  Country: None (occurrence: None)
  Receive Date: 20080319
  Receipt Date: 20080314
  Transmission Date: 20080703
  Serious: Yes (Hospitalization, Other)
  Sender: FDA-Public Use
  Company Number: US-ALLERGAN-0803152US

PATIENT
  Sex: Female

DRUGS (8)
  1. BOTOX [Suspect]
     Indication: BACK PAIN
     Dosage: UNK, SINGLE
     Route: 030
     Dates: start: 20080304, end: 20080304
  2. BOTOX [Suspect]
     Indication: SCOLIOSIS
  3. COUMADIN [Suspect]
     Indication: DRUG USE FOR UNKNOWN INDICATION
  4. COREG [Concomitant]
  5. LISINOPRIL [Concomitant]
  6. ALLEGRA [Concomitant]
  7. VYTORIN [Concomitant]
  8. CYCLOBENZAPRINE HCL [Concomitant]

REACTIONS (10)
  - COLLAPSE OF LUNG [None]
  - COUGH [None]
  - DRUG ADMINISTERED AT INAPPROPRIATE SITE [None]
  - DYSPNOEA [None]
  - INCISION SITE HAEMORRHAGE [None]
  - INJECTION SITE REACTION [None]
  - INSOMNIA [None]
  - MUSCULOSKELETAL PAIN [None]
  - PAIN [None]
  - PNEUMOTHORAX [None]
